FAERS Safety Report 9410352 (Version 2)
Quarter: 2013Q3

REPORT INFORMATION
  Report Type: Spontaneous
  Country: JP (occurrence: JP)
  Receive Date: 20130719
  Receipt Date: 20130808
  Transmission Date: 20140515
  Serious: Yes (Other)
  Sender: FDA-Public Use
  Company Number: JP-BAXTER-2013BAX027295

PATIENT
  Age: 61 Year
  Sex: Female
  Weight: 92 kg

DRUGS (8)
  1. SUPRANE [Suspect]
     Indication: LYMPHOID TISSUE OPERATION
     Dosage: 4-5%
  2. REMIFENTANIL [Suspect]
     Indication: LYMPHOID TISSUE OPERATION
     Dosage: 0.2-0.3 MCG/KG/MIN
     Route: 042
  3. FENTANYL [Concomitant]
     Indication: LYMPHOID TISSUE OPERATION
     Route: 042
  4. PROPOFOL [Concomitant]
     Indication: LYMPHOID TISSUE OPERATION
     Route: 042
  5. ROCURONIUM [Concomitant]
     Indication: LYMPHOID TISSUE OPERATION
     Route: 042
  6. FLURBIPROFEN [Concomitant]
     Indication: LYMPHOID TISSUE OPERATION
     Route: 041
  7. OXYGEN [Concomitant]
     Indication: LYMPHOID TISSUE OPERATION
  8. VALSARTAN [Concomitant]
     Indication: HYPERTENSION
     Route: 048

REACTIONS (1)
  - Pulmonary oedema [Recovered/Resolved]
